FAERS Safety Report 5842711-7 (Version None)
Quarter: 2008Q3

REPORT INFORMATION
  Report Type: 
  Country: None (occurrence: None)
  Receive Date: 20080808
  Receipt Date: 20080729
  Transmission Date: 20090109
  Serious: Yes (Hospitalization)
  Sender: FDA-Public Use
  Company Number: 237215J08USA

PATIENT
  Age: 45 Year
  Sex: Female
  Weight: 101.1521 kg

DRUGS (5)
  1. REBIF [Suspect]
     Indication: MULTIPLE SCLEROSIS
     Dosage: 44 MCG, 3 IN 1 WEEKS, SUBCUTANEOUS
     Route: 058
     Dates: start: 20080103
  2. BACLOFEN [Concomitant]
  3. ALEVE (CAPLET) [Concomitant]
  4. OSCAL (CALCIUM CARBONATE) [Concomitant]
  5. ONE-A-DAY WOMENS (ONE-A DAY/ 00156401/) [Concomitant]

REACTIONS (5)
  - CONDITION AGGRAVATED [None]
  - CONVULSION [None]
  - DIZZINESS [None]
  - LOSS OF CONSCIOUSNESS [None]
  - PAROSMIA [None]
